FAERS Safety Report 5108826-6 (Version None)
Quarter: 2006Q3

REPORT INFORMATION
  Report Type: 
  Country: None (occurrence: None)
  Receive Date: 20060915
  Receipt Date: 20060915
  Transmission Date: 20061208
  Serious: Yes (Life-Threatening, Hospitalization)
  Sender: FDA-Public Use
  Company Number: None

PATIENT
  Age: 57 Year
  Sex: Female
  Weight: 72.6 kg

DRUGS (2)
  1. AVELOX [Suspect]
     Indication: PYREXIA
     Dosage: 400 MG PO DAILY
     Route: 048
     Dates: start: 20060825, end: 20060827
  2. GLIPIZIDE [Suspect]
     Indication: DIABETES MELLITUS
     Dosage: 5 MG PO DAILY PTA+
     Route: 048
     Dates: start: 20060825, end: 20060827

REACTIONS (1)
  - HYPOGLYCAEMIA [None]
